FAERS Safety Report 16031872 (Version 10)
Quarter: 2019Q3

REPORT INFORMATION
  Report Type: Spontaneous
  Country: US (occurrence: US)
  Receive Date: 20190304
  Receipt Date: 20190913
  Transmission Date: 20191004
  Serious: No
  Sender: FDA-Public Use
  Company Number: US-PFIZER INC-2019081122

PATIENT
  Age: 72 Year
  Sex: Female
  Weight: 88 kg

DRUGS (7)
  1. IBRANCE [Suspect]
     Active Substance: PALBOCICLIB
     Indication: BREAST CANCER FEMALE
     Dosage: 100 MG, CYCLIC, (ONCE A DAY FOR 21 DAYS THEN OFF 7 DAYS)
     Route: 048
     Dates: start: 20180706, end: 201807
  2. BIOTIN [Concomitant]
     Active Substance: BIOTIN
     Dosage: 1000 MG, 2X/DAY
  3. FASLODEX [Concomitant]
     Active Substance: FULVESTRANT
     Indication: BREAST CANCER FEMALE
     Dosage: 250 MG, UNK (250 MG SHOTS, ONE IN EACH HIP)
     Dates: start: 2018, end: 2018
  4. IBRANCE [Suspect]
     Active Substance: PALBOCICLIB
     Dosage: 100 MG, CYCLIC (ON 3 WEEKS, OFF 1 WEEK)
     Route: 048
     Dates: start: 20180801
  5. FASLODEX [Concomitant]
     Active Substance: FULVESTRANT
     Dosage: 500 MG, MONTHLY (EVERY 4 WEEKS)
     Route: 030
     Dates: start: 20180801
  6. XGEVA [Concomitant]
     Active Substance: DENOSUMAB
     Dosage: 120 MG, SINGLE
     Dates: start: 2019
  7. VITAMIN E [Concomitant]
     Active Substance: .ALPHA.-TOCOPHEROL
     Dosage: 1000 MG, 2X/DAY

REACTIONS (14)
  - Dry skin [Not Recovered/Not Resolved]
  - Skin wrinkling [Unknown]
  - Lymphoedema [Unknown]
  - Fatigue [Unknown]
  - Skin exfoliation [Unknown]
  - Feeling abnormal [Recovered/Resolved]
  - Thinking abnormal [Unknown]
  - Joint injury [Unknown]
  - Hormone level abnormal [Unknown]
  - Malaise [Recovered/Resolved]
  - Hypermagnesaemia [Recovered/Resolved]
  - Alopecia [Not Recovered/Not Resolved]
  - Arthralgia [Unknown]
  - Joint swelling [Unknown]

NARRATIVE: CASE EVENT DATE: 2018
